FAERS Safety Report 4941585-6 (Version None)
Quarter: 2006Q1

REPORT INFORMATION
  Report Type: 
  Country: None (occurrence: None)
  Receive Date: 20060313
  Receipt Date: 20051117
  Transmission Date: 20060701
  Serious: Yes (Hospitalization, Other)
  Sender: FDA-Public Use
  Company Number: US-AVENTIS-200519357US

PATIENT
  Age: 53 Year
  Sex: Female

DRUGS (22)
  1. KETEK [Suspect]
     Dosage: DOSE: NOT PROVIDED
     Dates: start: 20051101, end: 20051101
  2. NEURONTIN [Suspect]
     Dosage: DOSE: NOT PROVIDED
  3. ANTIPSYCHOTICS [Suspect]
     Dosage: DOSE: NOT PROVIDED
  4. SYNTHROID [Concomitant]
     Route: 048
  5. PREMARIN [Concomitant]
  6. LOTREL [Concomitant]
     Dosage: DOSE: 10/20
  7. NAPROSYN [Concomitant]
     Dosage: DOSE: UNK
  8. ANTIDEPRESSANTS [Concomitant]
  9. ASPIRIN [Concomitant]
     Dosage: DOSE: UNK
  10. LORTAB [Concomitant]
     Dosage: DOSE: UNK
  11. CLARITIN [Concomitant]
     Route: 048
  12. MIDRIN [Concomitant]
     Dosage: DOSE: 1-2 TABLETS
     Route: 048
  13. MYLANTA [Concomitant]
     Dosage: DOSE: UNK
  14. MOTRIN [Concomitant]
     Indication: PAIN
     Dosage: DOSE: UNK
  15. GENASEC [Concomitant]
     Dosage: DOSE: UNK
  16. IMIPRAMINE [Concomitant]
     Dosage: DOSE: UNK
  17. DESYREL [Concomitant]
     Dosage: DOSE: UNK
  18. PROMETHAZINE [Concomitant]
     Dosage: DOSE: UNK
  19. CHLORPROMAZINE [Concomitant]
     Dosage: DOSE: UNK
  20. EXCEDRIN (MIGRAINE) [Concomitant]
     Dosage: DOSE: UNK
  21. TAGAMET [Concomitant]
     Dosage: DOSE: UNK
  22. BACTRIM DS [Concomitant]
     Dosage: DOSE: UNK

REACTIONS (16)
  - ABDOMINAL PAIN [None]
  - ANAEMIA [None]
  - BLOOD CREATININE INCREASED [None]
  - BLOOD UREA INCREASED [None]
  - CONFUSIONAL STATE [None]
  - DECREASED APPETITE [None]
  - DIARRHOEA [None]
  - DIZZINESS [None]
  - FALL [None]
  - HALLUCINATION [None]
  - HEARING IMPAIRED [None]
  - HYPOAESTHESIA [None]
  - HYPOTENSION [None]
  - MYALGIA [None]
  - RENAL FAILURE ACUTE [None]
  - RHABDOMYOLYSIS [None]
